FAERS Safety Report 26106484 (Version 1)
Quarter: 2025Q4

REPORT INFORMATION
  Report Type: Spontaneous
  Country: US (occurrence: US)
  Receive Date: 20251201
  Receipt Date: 20251201
  Transmission Date: 20260117
  Serious: No
  Sender: AZURITY PHARMACEUTICALS
  Company Number: US-AZURITY PHARMACEUTICALS, INC.-AZR202507-001881

PATIENT
  Sex: Female

DRUGS (1)
  1. TOPIRAMATE [Suspect]
     Active Substance: TOPIRAMATE
     Indication: Product used for unknown indication
     Dosage: 4.5 MILLILITRE (ML) (112.5 MG) PER DAY
     Route: 065

REACTIONS (3)
  - Vomiting [Unknown]
  - Product use complaint [Unknown]
  - Product dose omission issue [Unknown]
